FAERS Safety Report 7843040-2 (Version None)
Quarter: 2011Q4

REPORT INFORMATION
  Report Type: 
  Country: None (occurrence: None)
  Receive Date: 20111024
  Receipt Date: 20111024
  Transmission Date: 20120403
  Serious: No
  Sender: FDA-Public Use
  Company Number: None

PATIENT
  Age: 57 Year
  Sex: Female
  Weight: 80.9 kg

DRUGS (1)
  1. LANSOPRAZOLE [Suspect]
     Indication: GASTROOESOPHAGEAL REFLUX DISEASE
     Dosage: 30MG QD PO
     Route: 048
     Dates: start: 20110928, end: 20111004

REACTIONS (3)
  - GASTROINTESTINAL DISORDER [None]
  - DIZZINESS [None]
  - PRODUCT SUBSTITUTION ISSUE [None]
